FAERS Safety Report 22204029 (Version 2)
Quarter: 2023Q2

REPORT INFORMATION
  Report Type: Report from Study
  Country: US (occurrence: US)
  Receive Date: 20230412
  Receipt Date: 20230504
  Transmission Date: 20230721
  Serious: Yes (Hospitalization)
  Sender: FDA-Public Use
  Company Number: US-SEATTLE GENETICS-2023SGN03592

PATIENT
  Age: 38 Year
  Sex: Female

DRUGS (2)
  1. TUCATINIB [Suspect]
     Active Substance: TUCATINIB
     Indication: Breast cancer female
     Dosage: UNK
     Route: 065
  2. TUCATINIB [Suspect]
     Active Substance: TUCATINIB
     Dosage: UNK
     Route: 065

REACTIONS (12)
  - Dehydration [Unknown]
  - Liver function test abnormal [Unknown]
  - Renal function test abnormal [Unknown]
  - Blood potassium increased [Unknown]
  - Paracentesis [Unknown]
  - Vomiting [Unknown]
  - Pruritus [Unknown]
  - Dry skin [Unknown]
  - Hypersensitivity [Unknown]
  - Constipation [Unknown]
  - Haemoglobin decreased [Unknown]
  - Nausea [Unknown]

NARRATIVE: CASE EVENT DATE: 20230327
